FAERS Safety Report 4549877-X (Version None)
Quarter: 2004Q4

REPORT INFORMATION
  Report Type: 
  Country: None (occurrence: None)
  Receive Date: 20041227
  Receipt Date: 20041005
  Transmission Date: 20050328
  Serious: No
  Sender: FDA-Public Use
  Company Number: 04P-163-0276212-00

PATIENT
  Age: 67 Year
  Sex: Female
  Weight: 61.2356 kg

DRUGS (5)
  1. HUMIRA [Suspect]
     Indication: RHEUMATOID ARTHRITIS
     Dosage: 40 MG, 1 IN 2 D, SUBCUTANEOUS
     Route: 058
     Dates: start: 20040426, end: 20041001
  2. HYDROCODONE [Concomitant]
  3. OXYBUTYNIN HYDROCHLORIDE [Concomitant]
  4. MULTI-VITAMINS [Concomitant]
  5. CALCIUM GLUCONATE [Concomitant]

REACTIONS (1)
  - NASOPHARYNGITIS [None]
